FAERS Safety Report 13831715 (Version 1)
Quarter: 2017Q3

REPORT INFORMATION
  Report Type: Spontaneous
  Country: US (occurrence: US)
  Receive Date: 20170803
  Receipt Date: 20170803
  Transmission Date: 20171127
  Serious: No
  Sender: FDA-Public Use
  Company Number: US-ROCHE-673438

PATIENT
  Sex: Female
  Weight: 56.2 kg

DRUGS (1)
  1. BONIVA [Suspect]
     Active Substance: IBANDRONATE SODIUM
     Indication: OSTEOPENIA
     Dosage: MISSED OCT AND NOV DOSES
     Route: 048
     Dates: start: 200906, end: 200909

REACTIONS (4)
  - Influenza like illness [Unknown]
  - Diarrhoea [Unknown]
  - Abdominal pain upper [Unknown]
  - Pain [Unknown]
